FAERS Safety Report 9259944 (Version 3)
Quarter: 2013Q2

REPORT INFORMATION
  Report Type: Spontaneous
  Country: US (occurrence: US)
  Receive Date: 20130429
  Receipt Date: 20130624
  Transmission Date: 20140414
  Serious: Yes (Other)
  Sender: FDA-Public Use
  Company Number: US-JNJFOC-20130318916

PATIENT
  Age: 79 Year
  Sex: Female
  Weight: 60.33 kg

DRUGS (17)
  1. DURAGESIC [Suspect]
     Indication: LYME DISEASE
     Dosage: 75 UG/HR EVERY 48-72 HOURS
     Route: 062
  2. DURAGESIC [Suspect]
     Indication: LYME DISEASE
     Route: 062
     Dates: start: 2003
  3. DURAGESIC [Suspect]
     Indication: LYME DISEASE
     Route: 062
     Dates: start: 1993, end: 1995
  4. DURAGESIC [Suspect]
     Indication: LYME DISEASE
     Dosage: 75 UG/HR EVERY 48-72 HOURS
     Route: 062
     Dates: start: 1995
  5. DURAGESIC [Suspect]
     Indication: PAIN
     Route: 062
     Dates: start: 2003
  6. DURAGESIC [Suspect]
     Indication: PAIN
     Route: 062
     Dates: start: 1993, end: 1995
  7. DURAGESIC [Suspect]
     Indication: PAIN
     Dosage: 75 UG/HR EVERY 48-72 HOURS
     Route: 062
     Dates: start: 1995
  8. DURAGESIC [Suspect]
     Indication: PAIN
     Dosage: 75 UG/HR EVERY 48-72 HOURS
     Route: 062
  9. DURAGESIC [Suspect]
     Indication: FIBROMYALGIA
     Route: 062
     Dates: start: 2003
  10. DURAGESIC [Suspect]
     Indication: FIBROMYALGIA
     Dosage: 75 UG/HR EVERY 48-72 HOURS
     Route: 062
     Dates: start: 1995
  11. DURAGESIC [Suspect]
     Indication: FIBROMYALGIA
     Route: 062
     Dates: start: 1993, end: 1995
  12. DURAGESIC [Suspect]
     Indication: FIBROMYALGIA
     Dosage: 75 UG/HR EVERY 48-72 HOURS
     Route: 062
  13. DURAGESIC [Suspect]
     Indication: FIBROMYALGIA
     Dosage: 75 UG/HR EVERY 48-72 HOURS
     Route: 062
  14. NORVASC [Concomitant]
     Indication: BLOOD PRESSURE
     Route: 048
  15. SYNTHROID [Concomitant]
     Indication: PRODUCT USED FOR UNKNOWN INDICATION
     Route: 048
  16. KLONOPIN [Concomitant]
     Indication: CONVULSION
     Route: 065
     Dates: end: 2013
  17. AMBIEN [Concomitant]
     Indication: SLEEP DISORDER
     Route: 065

REACTIONS (10)
  - Concussion [Unknown]
  - Oesophageal pain [Recovered/Resolved]
  - Weight decreased [Recovered/Resolved]
  - Adverse event [Unknown]
  - Ligament sprain [Recovered/Resolved]
  - Movement disorder [Not Recovered/Not Resolved]
  - Eating disorder [Recovered/Resolved]
  - Pain [Not Recovered/Not Resolved]
  - Memory impairment [Unknown]
  - Drug ineffective [Recovered/Resolved]
